FAERS Safety Report 5655078-4 (Version None)
Quarter: 2008Q1

REPORT INFORMATION
  Report Type: 
  Country: None (occurrence: None)
  Receive Date: 20080307
  Receipt Date: 20080108
  Transmission Date: 20080703
  Serious: No
  Sender: FDA-Public Use
  Company Number: A0696087A

PATIENT
  Sex: Female

DRUGS (3)
  1. REQUIP [Suspect]
     Indication: RESTLESS LEGS SYNDROME
     Dosage: .25MG AT NIGHT
     Route: 048
     Dates: start: 20071104
  2. SINEMET [Concomitant]
  3. COREG [Concomitant]

REACTIONS (2)
  - DRUG INEFFECTIVE [None]
  - SLEEP DISORDER [None]
